FAERS Safety Report 9174183 (Version 12)
Quarter: 2013Q3

REPORT INFORMATION
  Report Type: Spontaneous
  Country: US (occurrence: US)
  Receive Date: 20130320
  Receipt Date: 20130917
  Transmission Date: 20140515
  Serious: Yes (Death, Other)
  Sender: FDA-Public Use
  Company Number: US-PFIZER INC-2013087838

PATIENT
  Age: 66 Year
  Sex: Female
  Weight: 49.89 kg

DRUGS (11)
  1. SUTENT [Suspect]
     Indication: RENAL CELL CARCINOMA
     Dosage: 37.5 MG, 1X/DAY
     Route: 048
     Dates: start: 20130312, end: 20130715
  2. SUTENT [Suspect]
     Indication: PANCREATIC NEUROENDOCRINE TUMOUR
  3. SUTENT [Suspect]
     Indication: NEUROENDOCRINE CARCINOMA
  4. ALBUTEROL [Concomitant]
     Dosage: UNK, AS NEEDED (PRN)
     Route: 055
  5. ADVAIR DISKUS [Concomitant]
     Dosage: UNK
  6. SINGULAIR [Concomitant]
     Dosage: UNK
  7. AMBIEN [Concomitant]
     Dosage: UNK, AS NEEDED (PRN)
  8. ADVAIR [Concomitant]
     Dosage: UNK
  9. MAGIC MOUTHWASH [Concomitant]
     Dosage: UNK
  10. AMLODIPINE [Concomitant]
     Dosage: UNK
  11. PROMETHAZINE [Concomitant]
     Dosage: UNK

REACTIONS (17)
  - Death [Fatal]
  - Hypertension [Recovered/Resolved]
  - Fatigue [Recovered/Resolved]
  - Asthenia [Recovered/Resolved]
  - Pyrexia [Recovered/Resolved]
  - Oral discomfort [Unknown]
  - Dysgeusia [Unknown]
  - Dyspepsia [Unknown]
  - Eyelid oedema [Unknown]
  - Yellow skin [Unknown]
  - Local swelling [Unknown]
  - Skin fissures [Unknown]
  - Swelling face [Unknown]
  - Dizziness [Recovered/Resolved]
  - Rash [Recovering/Resolving]
  - Balance disorder [Unknown]
  - Asthenia [Recovered/Resolved]
